FAERS Safety Report 24816335 (Version 2)
Quarter: 2025Q1

REPORT INFORMATION
  Report Type: Spontaneous
  Country: US (occurrence: US)
  Receive Date: 20250107
  Receipt Date: 20250310
  Transmission Date: 20250409
  Serious: Yes (Other)
  Sender: PFIZER
  Company Number: US-PFIZER INC-202500001321

PATIENT
  Age: 43 Year
  Sex: Female

DRUGS (12)
  1. TALZENNA [Suspect]
     Active Substance: TALAZOPARIB TOSYLATE
     Dosage: 0.75 MG, DAILY
     Route: 048
     Dates: start: 20241126
  2. LIDOCAINE [Concomitant]
     Active Substance: LIDOCAINE
  3. ZOLEDRONIC [Concomitant]
     Active Substance: ZOLEDRONIC ACID
  4. SERTRALINE HYDROCHLORIDE [Concomitant]
     Active Substance: SERTRALINE HYDROCHLORIDE
  5. TRAMADOL [Concomitant]
     Active Substance: TRAMADOL
  6. OLANZAPINE [Concomitant]
     Active Substance: OLANZAPINE
  7. EXEMESTANE [Concomitant]
     Active Substance: EXEMESTANE
  8. BIOTIN [Concomitant]
     Active Substance: BIOTIN
  9. RITALIN [Concomitant]
     Active Substance: METHYLPHENIDATE HYDROCHLORIDE
  10. ACYCLOVIR [Concomitant]
     Active Substance: ACYCLOVIR
  11. SANCUSO [Concomitant]
     Active Substance: GRANISETRON
  12. SENNOSIDES A AND B [Concomitant]
     Active Substance: SENNOSIDES A AND B

REACTIONS (2)
  - Thrombocytopenia [Recovered/Resolved]
  - Anaemia [Not Recovered/Not Resolved]

NARRATIVE: CASE EVENT DATE: 20241219
